FAERS Safety Report 6658810-6 (Version None)
Quarter: 2010Q1

REPORT INFORMATION
  Report Type: 
  Country: None (occurrence: None)
  Receive Date: 20100325
  Receipt Date: 20100309
  Transmission Date: 20100710
  Serious: Yes (Hospitalization, Other)
  Sender: FDA-Public Use
  Company Number: VAL_00369_2010

PATIENT
  Sex: Female

DRUGS (5)
  1. ROCALTROL [Suspect]
     Indication: HYPERPARATHYROIDISM SECONDARY
     Dosage: 1 UG 1X/ WEEKS INTRAVENOUS (NOT OTHERWISE SPECIFIED)
     Route: 042
     Dates: start: 20090316, end: 20090511
  2. LANSOPRAZOLE [Concomitant]
  3. ASPIRIN [Concomitant]
  4. CARVEDILOL [Concomitant]
  5. HYPEN [Concomitant]

REACTIONS (11)
  - ARTHRALGIA [None]
  - BLOOD ALKALINE PHOSPHATASE INCREASED [None]
  - CONDITION AGGRAVATED [None]
  - DECREASED APPETITE [None]
  - DELIRIUM [None]
  - DIZZINESS [None]
  - DYSARTHRIA [None]
  - HALLUCINATION [None]
  - HYPERCALCAEMIA [None]
  - SOMNOLENCE [None]
  - VERTIGO [None]
